FAERS Safety Report 12419428 (Version 1)
Quarter: 2016Q2

REPORT INFORMATION
  Report Type: Spontaneous
  Country: GB (occurrence: GB)
  Receive Date: 20160531
  Receipt Date: 20160531
  Transmission Date: 20160815
  Serious: Yes (Other)
  Sender: FDA-Public Use
  Company Number: GB-WATSON-2016-11236

PATIENT
  Age: 45 Year
  Sex: Female

DRUGS (1)
  1. SERTRALINE [Suspect]
     Active Substance: SERTRALINE HYDROCHLORIDE
     Indication: ANTIDEPRESSANT THERAPY
     Dosage: 50 MG, UNKNOWN
     Route: 048
     Dates: start: 20160408, end: 20160409

REACTIONS (2)
  - Agitation [Recovered/Resolved]
  - Acute psychosis [Recovered/Resolved]

NARRATIVE: CASE EVENT DATE: 20160408
